FAERS Safety Report 18738804 (Version 6)
Quarter: 2021Q2

REPORT INFORMATION
  Report Type: Report from Study
  Country: US (occurrence: US)
  Receive Date: 20210114
  Receipt Date: 20210420
  Transmission Date: 20210717
  Serious: Yes (Death, Hospitalization)
  Sender: FDA-Public Use
  Company Number: US-ROCHE-2666145

PATIENT
  Age: 60 Year
  Sex: Male
  Weight: 68.2 kg

DRUGS (89)
  1. VANCOMYCIN [Concomitant]
     Active Substance: VANCOMYCIN
     Route: 042
     Dates: start: 20200824, end: 20200824
  2. VANCOMYCIN [Concomitant]
     Active Substance: VANCOMYCIN
     Route: 042
     Dates: start: 20200826, end: 20200828
  3. MEDICAL MARIJUANA [Concomitant]
     Active Substance: CANNABIS SATIVA SUBSP. INDICA TOP
     Route: 048
     Dates: start: 2016
  4. ONDANSETRON [Concomitant]
     Active Substance: ONDANSETRON
     Route: 048
     Dates: start: 20200211
  5. REMDESIVIR. [Concomitant]
     Active Substance: REMDESIVIR
     Route: 042
     Dates: start: 20200528
  6. REMDESIVIR. [Concomitant]
     Active Substance: REMDESIVIR
     Route: 042
     Dates: start: 20200828, end: 20200905
  7. LOPERAMIDE [Concomitant]
     Active Substance: LOPERAMIDE
     Route: 048
     Dates: start: 20200731, end: 20200731
  8. PLATELETS [Concomitant]
     Active Substance: HUMAN PLATELET, ALLOGENIC
     Dosage: 1U
     Route: 042
     Dates: start: 20200504, end: 20200504
  9. OXYMETAZOLINE [Concomitant]
     Active Substance: OXYMETAZOLINE
     Dosage: 1 SPRAY
     Route: 045
     Dates: start: 20200509, end: 20200509
  10. POTASSIUM CHLORIDE. [Concomitant]
     Active Substance: POTASSIUM CHLORIDE
     Dosage: 40 OTHER
     Route: 048
     Dates: start: 20200522, end: 20200522
  11. ACYCLOVIR. [Concomitant]
     Active Substance: ACYCLOVIR
     Route: 048
     Dates: start: 2015
  12. RANITIDINE. [Concomitant]
     Active Substance: RANITIDINE
     Route: 048
     Dates: start: 2016
  13. ONDANSETRON [Concomitant]
     Active Substance: ONDANSETRON
     Route: 048
     Dates: start: 20200811, end: 20200811
  14. ATORVASTATIN [Concomitant]
     Active Substance: ATORVASTATIN
     Route: 048
     Dates: start: 2016, end: 20200520
  15. MAGNESIUM SULFATE. [Concomitant]
     Active Substance: MAGNESIUM SULFATE
     Route: 042
     Dates: start: 20200729, end: 20200729
  16. LOPERAMIDE [Concomitant]
     Active Substance: LOPERAMIDE
     Route: 048
     Dates: start: 20200801
  17. CEFEPIME [Concomitant]
     Active Substance: CEFEPIME HYDROCHLORIDE
     Route: 042
     Dates: start: 20200828, end: 20200829
  18. ENOXAPARIN [Concomitant]
     Active Substance: ENOXAPARIN
     Route: 058
     Dates: start: 20200521, end: 20200604
  19. DOXYCYCLINE. [Concomitant]
     Active Substance: DOXYCYCLINE
     Route: 042
     Dates: start: 20200521, end: 20200521
  20. SODIUM CHLORIDE. [Concomitant]
     Active Substance: SODIUM CHLORIDE
     Route: 042
     Dates: start: 20200521, end: 20200521
  21. FOSAPREPITANT [Concomitant]
     Active Substance: FOSAPREPITANT
     Route: 042
     Dates: start: 20200428, end: 20200428
  22. PEGFILGRASTIM [Concomitant]
     Active Substance: PEGFILGRASTIM
     Route: 058
     Dates: start: 20200811, end: 20200811
  23. PEGFILGRASTIM [Concomitant]
     Active Substance: PEGFILGRASTIM
     Route: 058
     Dates: start: 20200408, end: 20200408
  24. PLATELETS [Concomitant]
     Active Substance: HUMAN PLATELET, ALLOGENIC
     Dosage: 2U
     Route: 042
     Dates: start: 20200815, end: 20200815
  25. PLATELETS [Concomitant]
     Active Substance: HUMAN PLATELET, ALLOGENIC
     Dosage: 1U
     Route: 042
     Dates: start: 20201006, end: 20201006
  26. PLATELETS [Concomitant]
     Active Substance: HUMAN PLATELET, ALLOGENIC
     Dosage: 1 U
     Route: 042
     Dates: start: 20200505, end: 20200505
  27. POTASSIUM CHLORIDE. [Concomitant]
     Active Substance: POTASSIUM CHLORIDE
     Dosage: 40 OTHER
     Route: 048
     Dates: start: 20200527, end: 20200527
  28. LACTATED RINGERS SOLUTION [Concomitant]
     Active Substance: CALCIUM CHLORIDE\POTASSIUM CHLORIDE\SODIUM CHLORIDE\SODIUM LACTATE
     Route: 042
     Dates: start: 20200504, end: 20200504
  29. DRONABINOL. [Concomitant]
     Active Substance: DRONABINOL
     Route: 048
     Dates: start: 20200521, end: 20200605
  30. DIPHENHYDRAMINE. [Concomitant]
     Active Substance: DIPHENHYDRAMINE
     Route: 048
     Dates: start: 20200731, end: 20200731
  31. ZOSYN [Concomitant]
     Active Substance: PIPERACILLIN SODIUM\TAZOBACTAM SODIUM
     Route: 042
     Dates: start: 20200521, end: 20200523
  32. MIRTAZAPINE. [Concomitant]
     Active Substance: MIRTAZAPINE
     Route: 048
     Dates: start: 201910
  33. ALLOPURINOL. [Concomitant]
     Active Substance: ALLOPURINOL
     Route: 048
     Dates: start: 20191001
  34. REMDESIVIR. [Concomitant]
     Active Substance: REMDESIVIR
     Route: 042
     Dates: start: 20200527, end: 20200527
  35. PAROXETINE. [Concomitant]
     Active Substance: PAROXETINE
     Route: 048
     Dates: start: 20200522
  36. CODEINE;GUAIFENESIN [Concomitant]
     Active Substance: CODEINE\GUAIFENESIN
     Route: 048
     Dates: start: 20200524
  37. MAGNESIUM SULFATE. [Concomitant]
     Active Substance: MAGNESIUM SULFATE
     Route: 042
     Dates: start: 20200522, end: 20200522
  38. PLATELETS [Concomitant]
     Active Substance: HUMAN PLATELET, ALLOGENIC
     Dosage: 1U
     Route: 042
     Dates: start: 20200828, end: 20200828
  39. PACKED RED BLOOD CELLS [Concomitant]
     Active Substance: HUMAN RED BLOOD CELL
     Dosage: 1U
     Route: 042
     Dates: start: 20201001, end: 20201001
  40. DOXYCYCLINE. [Concomitant]
     Active Substance: DOXYCYCLINE
     Route: 042
     Dates: start: 20200521, end: 20200523
  41. POTASSIUM CHLORIDE. [Concomitant]
     Active Substance: POTASSIUM CHLORIDE
     Dosage: 40 OTHER
     Route: 048
     Dates: start: 20200827, end: 20200829
  42. SODIUM CHLORIDE. [Concomitant]
     Active Substance: SODIUM CHLORIDE
     Route: 042
     Dates: start: 20200519, end: 20200519
  43. MAGNESIUM OXIDE. [Concomitant]
     Active Substance: MAGNESIUM OXIDE
     Route: 048
     Dates: start: 20200527, end: 20200527
  44. DIPHENHYDRAMINE;ZINC ACETATE [Concomitant]
     Route: 061
     Dates: start: 20200731, end: 20200731
  45. CYCLOPHOSPHAMIDE. [Suspect]
     Active Substance: CYCLOPHOSPHAMIDE
     Indication: NON-HODGKIN^S LYMPHOMA
     Dosage: DATE OF MOST RECENT DOSE (680 MG) OF CYCLOPHOSPHAMIDE PRIOR TO AE ONSET: 11/AUG/2020?DATE OF MOST RE
     Route: 042
     Dates: start: 20200211
  46. DOXORUBICIN [Suspect]
     Active Substance: DOXORUBICIN
     Indication: NON-HODGKIN^S LYMPHOMA
     Dosage: DATE OF MOST RECENT DOSE (45 MG) OF DOXORUBICIN PRIOR TO AE ONSET: 11/AUG/2020?DATE OF MOST RECENT D
     Route: 042
     Dates: start: 20200211
  47. PREDNISONE. [Suspect]
     Active Substance: PREDNISONE
     Indication: NON-HODGKIN^S LYMPHOMA
     Dosage: DATE OF MOST RECENT DOSE (100 MG) OF PREDNISONE PRIOR TO AE ONSET: 15/AUG/2020?DATE OF MOST RECENT D
     Route: 042
     Dates: start: 20200211
  48. ACETAMINOPHEN. [Concomitant]
     Active Substance: ACETAMINOPHEN
     Route: 048
     Dates: start: 1976
  49. ATORVASTATIN [Concomitant]
     Active Substance: ATORVASTATIN
     Route: 048
     Dates: start: 20200521
  50. DEXAMETHASONE. [Concomitant]
     Active Substance: DEXAMETHASONE
     Route: 048
     Dates: start: 20200428, end: 20200428
  51. PLATELETS [Concomitant]
     Active Substance: HUMAN PLATELET, ALLOGENIC
     Dosage: 1U
     Route: 042
     Dates: start: 20200729, end: 20200729
  52. PACKED RED BLOOD CELLS [Concomitant]
     Active Substance: HUMAN RED BLOOD CELL
     Dosage: 1 U
     Route: 042
     Dates: start: 20200829, end: 20200829
  53. LORAZEPAM. [Concomitant]
     Active Substance: LORAZEPAM
     Route: 042
     Dates: start: 20200504, end: 20200504
  54. HYDROXYZINE [Concomitant]
     Active Substance: HYDROXYZINE HYDROCHLORIDE
     Route: 048
     Dates: start: 20200731
  55. POLATUZUMAB VEDOTIN. [Suspect]
     Active Substance: POLATUZUMAB VEDOTIN
     Indication: NON-HODGKIN^S LYMPHOMA
     Dosage: DOSE OF LAST DOSE (123 MG) OF POLATUZUMAB VEDOTIN ADMINISTERED PRIOR TO SAE ONSET: 11/AUG/2020?DOSE
     Route: 042
     Dates: start: 20200211
  56. ZOSYN [Concomitant]
     Active Substance: PIPERACILLIN SODIUM\TAZOBACTAM SODIUM
     Route: 042
     Dates: start: 20200825, end: 20200828
  57. AZITHROMYCIN ANHYDROUS. [Concomitant]
     Active Substance: AZITHROMYCIN ANHYDROUS
     Route: 042
     Dates: start: 20200824, end: 20200825
  58. ACETAMINOPHEN. [Concomitant]
     Active Substance: ACETAMINOPHEN
     Route: 048
     Dates: start: 20200212
  59. ACETAMINOPHEN. [Concomitant]
     Active Substance: ACETAMINOPHEN
     Route: 048
     Dates: start: 20200520, end: 20200529
  60. CALCIUM CARBONATE. [Concomitant]
     Active Substance: CALCIUM CARBONATE
     Route: 048
     Dates: start: 2000
  61. BACTRIM [Concomitant]
     Active Substance: SULFAMETHOXAZOLE\TRIMETHOPRIM
     Route: 048
     Dates: start: 201911
  62. PLATELETS [Concomitant]
     Active Substance: HUMAN PLATELET, ALLOGENIC
     Dosage: 2U
     Route: 042
     Dates: start: 20200811, end: 20200811
  63. PLATELETS [Concomitant]
     Active Substance: HUMAN PLATELET, ALLOGENIC
     Dosage: 1 U
     Route: 042
     Dates: start: 20200831, end: 20200831
  64. GRANIX [Concomitant]
     Active Substance: TBO-FILGRASTIM
     Route: 058
     Dates: start: 20200420, end: 20200426
  65. POTASSIUM CHLORIDE. [Concomitant]
     Active Substance: POTASSIUM CHLORIDE
     Dosage: 10 OTHER
     Route: 042
     Dates: start: 20200829, end: 20200829
  66. SODIUM CHLORIDE. [Concomitant]
     Active Substance: SODIUM CHLORIDE
     Route: 042
     Dates: start: 20200522, end: 20200522
  67. TRAZODONE [Concomitant]
     Active Substance: TRAZODONE HYDROCHLORIDE
     Route: 048
     Dates: start: 20200531, end: 20200531
  68. MOSUNETUZUMAB. [Suspect]
     Active Substance: MOSUNETUZUMAB
     Indication: NON-HODGKIN^S LYMPHOMA
     Dosage: DATE OF MOST RECENT DOSE (30 MG) OF MOSUNETUZUMAB PRIOR TO AE ONSET: 11/AUG/2020?DATE OF MOST RECENT
     Route: 042
     Dates: start: 20200212
  69. VANCOMYCIN [Concomitant]
     Active Substance: VANCOMYCIN
     Route: 042
     Dates: start: 20200829, end: 20200829
  70. AZITHROMYCIN ANHYDROUS. [Concomitant]
     Active Substance: AZITHROMYCIN ANHYDROUS
     Route: 042
     Dates: start: 20200825, end: 20200829
  71. ONDANSETRON [Concomitant]
     Active Substance: ONDANSETRON
     Route: 048
     Dates: start: 20200428, end: 20200428
  72. CETIRIZINE [Concomitant]
     Active Substance: CETIRIZINE HYDROCHLORIDE
     Route: 048
     Dates: start: 20200222
  73. TRIAMCINOLONE [Concomitant]
     Active Substance: TRIAMCINOLONE
     Route: 061
     Dates: start: 20200210
  74. MAGNESIUM SULFATE. [Concomitant]
     Active Substance: MAGNESIUM SULFATE
     Route: 042
     Dates: start: 20200521, end: 20200521
  75. DEXAMETHASONE. [Concomitant]
     Active Substance: DEXAMETHASONE
     Route: 048
     Dates: start: 20200811, end: 20200811
  76. FOSAPREPITANT [Concomitant]
     Active Substance: FOSAPREPITANT
     Route: 042
     Dates: start: 20200811, end: 20200811
  77. PLATELETS [Concomitant]
     Active Substance: HUMAN PLATELET, ALLOGENIC
     Dosage: 2U
     Route: 042
     Dates: start: 20200819, end: 20200819
  78. PLATELETS [Concomitant]
     Active Substance: HUMAN PLATELET, ALLOGENIC
     Dosage: 1U
     Route: 042
     Dates: start: 20200824, end: 20200825
  79. PLATELETS [Concomitant]
     Active Substance: HUMAN PLATELET, ALLOGENIC
     Dosage: 1U
     Route: 042
     Dates: start: 20201003, end: 20201003
  80. PLATELETS [Concomitant]
     Active Substance: HUMAN PLATELET, ALLOGENIC
     Dosage: 1 U
     Route: 042
     Dates: start: 20200727, end: 20200727
  81. PACKED RED BLOOD CELLS [Concomitant]
     Active Substance: HUMAN RED BLOOD CELL
     Dosage: 2U
     Route: 042
     Dates: start: 20200815, end: 20200815
  82. PACKED RED BLOOD CELLS [Concomitant]
     Active Substance: HUMAN RED BLOOD CELL
     Dosage: 2U
     Route: 042
     Dates: start: 20200825, end: 20200825
  83. SODIUM CHLORIDE. [Concomitant]
     Active Substance: SODIUM CHLORIDE
     Route: 042
     Dates: start: 20200507, end: 20200507
  84. LIDOCAINE. [Concomitant]
     Active Substance: LIDOCAINE
     Route: 061
     Dates: start: 20200521, end: 20200525
  85. REMDESIVIR. [Concomitant]
     Active Substance: REMDESIVIR
     Route: 042
     Dates: start: 20200827, end: 20200827
  86. PLATELETS [Concomitant]
     Active Substance: HUMAN PLATELET, ALLOGENIC
     Dosage: 1 U
     Route: 042
     Dates: start: 20200826, end: 20200826
  87. PACKED RED BLOOD CELLS [Concomitant]
     Active Substance: HUMAN RED BLOOD CELL
     Dosage: 1U
     Route: 042
     Dates: start: 20201005, end: 20201005
  88. POTASSIUM CHLORIDE. [Concomitant]
     Active Substance: POTASSIUM CHLORIDE
     Dosage: 80 OTHER
     Route: 048
     Dates: start: 20200830, end: 20200830
  89. MAGNESIUM OXIDE. [Concomitant]
     Active Substance: MAGNESIUM OXIDE
     Route: 048
     Dates: start: 20200821, end: 20200821

REACTIONS (4)
  - COVID-19 [Not Recovered/Not Resolved]
  - COVID-19 [Recovered/Resolved]
  - Respiratory failure [Fatal]
  - Chest pain [Recovered/Resolved]

NARRATIVE: CASE EVENT DATE: 20200504
